FAERS Safety Report 11559071 (Version 1)
Quarter: 2015Q3

REPORT INFORMATION
  Report Type: Spontaneous
  Country: US (occurrence: None)
  Receive Date: 20150925
  Receipt Date: 20150925
  Transmission Date: 20151125
  Serious: Yes (Life-Threatening)
  Sender: FDA-Public Use
  Company Number: None

PATIENT
  Age: 63 Year
  Sex: Male
  Weight: 88.91 kg

DRUGS (13)
  1. MELOXICAM. [Concomitant]
     Active Substance: MELOXICAM
  2. MULTIVITAMIN [Concomitant]
     Active Substance: VITAMINS
  3. LIMBREL [Suspect]
     Active Substance: FLAVOCOXID
     Indication: INFLAMMATION
     Dosage: 1 PILL, BY MOUTH
     Dates: start: 20150724, end: 20150808
  4. DIGOXIN. [Concomitant]
     Active Substance: DIGOXIN
  5. PROAIR HFA [Concomitant]
     Active Substance: ALBUTEROL SULFATE
  6. TIZANIDINE. [Concomitant]
     Active Substance: TIZANIDINE
  7. D3 [Concomitant]
     Active Substance: 25-HYDROXYCHOLECALCIFEROL, 5-TRANS-
  8. ESTER-C [Concomitant]
     Active Substance: CALCIUM\VITAMINS
  9. METOPROLOL [Concomitant]
     Active Substance: METOPROLOL
  10. ALLERCHOR [Concomitant]
  11. LORATADINE. [Concomitant]
     Active Substance: LORATADINE
  12. ACETAMINOPHEN. [Concomitant]
     Active Substance: ACETAMINOPHEN
  13. ADVAIR HFA [Concomitant]
     Active Substance: FLUTICASONE PROPIONATE\SALMETEROL XINAFOATE

REACTIONS (10)
  - Asthenia [None]
  - Headache [None]
  - Eye pain [None]
  - Heart rate increased [None]
  - Chills [None]
  - Pyrexia [None]
  - Tremor [None]
  - Gait disturbance [None]
  - Mobility decreased [None]
  - Feeding disorder [None]

NARRATIVE: CASE EVENT DATE: 20150807
